FAERS Safety Report 18928689 (Version 1)
Quarter: 2021Q1

REPORT INFORMATION
  Report Type: Report from Study
  Country: US (occurrence: US)
  Receive Date: 20210223
  Receipt Date: 20210223
  Transmission Date: 20210420
  Serious: Yes (Other)
  Sender: FDA-Public Use
  Company Number: US-OTSUKA-2021_005176

PATIENT
  Sex: Male

DRUGS (5)
  1. FOLIC [Concomitant]
     Active Substance: FOLIC ACID
     Indication: PRODUCT USED FOR UNKNOWN INDICATION
     Dosage: UNK
     Route: 065
  2. ARIPIPRAZOLE (DUAL CHAMBER) [Suspect]
     Active Substance: ARIPIPRAZOLE
     Indication: BRAIN INJURY
     Dosage: UNK
     Route: 065
     Dates: start: 2017
  3. ARIPIPRAZOLE (DUAL CHAMBER) [Suspect]
     Active Substance: ARIPIPRAZOLE
     Dosage: 300 MG, UNK
     Route: 065
     Dates: start: 202012, end: 202012
  4. VITAMIN B9 [Concomitant]
     Indication: PRODUCT USED FOR UNKNOWN INDICATION
     Dosage: UNK
     Route: 065
  5. ABILIFY [Suspect]
     Active Substance: ARIPIPRAZOLE
     Indication: BRAIN INJURY
     Dosage: UNK
     Route: 065
     Dates: start: 2017

REACTIONS (28)
  - Brain injury [Unknown]
  - Vision blurred [Unknown]
  - Confusional state [Unknown]
  - Erythema [Unknown]
  - Drooling [Unknown]
  - Asthenia [Unknown]
  - Insomnia [Unknown]
  - Patient elopement [Unknown]
  - Decreased appetite [Unknown]
  - Underdose [Unknown]
  - Panic attack [Unknown]
  - Product use in unapproved indication [Unknown]
  - Seizure [Unknown]
  - Pollakiuria [Unknown]
  - Cognitive disorder [Unknown]
  - Agitation [Unknown]
  - Impulsive behaviour [Unknown]
  - Hyperhidrosis [Unknown]
  - Suicidal ideation [Unknown]
  - Heart rate irregular [Unknown]
  - Weight increased [Unknown]
  - Chills [Unknown]
  - Dizziness [Unknown]
  - Dyspepsia [Unknown]
  - Anxiety [Unknown]
  - Bowel movement irregularity [Unknown]
  - Apathy [Unknown]
  - Memory impairment [Unknown]

NARRATIVE: CASE EVENT DATE: 2017
